FAERS Safety Report 25987798 (Version 1)
Quarter: 2025Q4

REPORT INFORMATION
  Report Type: Report from Study
  Country: US (occurrence: None)
  Receive Date: 20251103
  Receipt Date: 20251103
  Transmission Date: 20260117
  Serious: Yes (Hospitalization, Other)
  Sender: UCB
  Company Number: UG-069-000002719

PATIENT
  Age: 42 Year

DRUGS (1)
  1. BIMEKIZUMAB [Suspect]
     Active Substance: BIMEKIZUMAB
     Indication: Hidradenitis
     Dosage: 320 MILLIGRAM, EV 2 WEEKS(QOW)

REACTIONS (8)
  - Hysterectomy [Recovering/Resolving]
  - Uterine leiomyoma [Recovering/Resolving]
  - Hidradenitis [Recovering/Resolving]
  - Condition aggravated [Recovering/Resolving]
  - Sweat gland infection [Recovering/Resolving]
  - Escherichia infection [Recovering/Resolving]
  - Injection site pain [Recovered/Resolved]
  - Intentional dose omission [Unknown]
